FAERS Safety Report 11232805 (Version 1)
Quarter: 2015Q3

REPORT INFORMATION
  Report Type: Spontaneous
  Country: US (occurrence: US)
  Receive Date: 20150701
  Receipt Date: 20150701
  Transmission Date: 20151125
  Serious: No
  Sender: FDA-Public Use
  Company Number: US-BAYER-2015-364589

PATIENT
  Age: 22 Year
  Sex: Female

DRUGS (1)
  1. SKYLA [Suspect]
     Active Substance: LEVONORGESTREL
     Indication: ABDOMINAL PAIN
     Dosage: 14 MCG/24HR, CONT
     Route: 015
     Dates: start: 2013

REACTIONS (2)
  - Device issue [None]
  - Off label use [None]
